FAERS Safety Report 10568452 (Version 1)
Quarter: 2014Q4

REPORT INFORMATION
  Report Type: Spontaneous
  Country: GB (occurrence: GB)
  Receive Date: 20141106
  Receipt Date: 20141106
  Transmission Date: 20150529
  Serious: Yes (Hospitalization)
  Sender: FDA-Public Use
  Company Number: GB-TEVA-519899ISR

PATIENT
  Age: 62 Year
  Sex: Female

DRUGS (9)
  1. AMIODARONE [Suspect]
     Active Substance: AMIODARONE
     Indication: ATRIAL FIBRILLATION
     Route: 048
     Dates: start: 201301, end: 201409
  2. CYCLIZINE [Concomitant]
     Active Substance: CYCLIZINE
  3. SUNITINIB [Concomitant]
     Active Substance: SUNITINIB
  4. ENOXAPARIN [Concomitant]
     Active Substance: ENOXAPARIN
  5. ALFACALCIDOL [Concomitant]
     Active Substance: ALFACALCIDOL
  6. BISOPROLOL [Concomitant]
     Active Substance: BISOPROLOL
  7. DOCUSATE [Concomitant]
     Active Substance: DOCUSATE
  8. CITALOPRAM [Concomitant]
     Active Substance: CITALOPRAM HYDROBROMIDE
  9. PROPYLTHIOURACIL. [Suspect]
     Active Substance: PROPYLTHIOURACIL
     Indication: HYPERTHYROIDISM

REACTIONS (2)
  - Neutropenic sepsis [Unknown]
  - Thyroiditis [Not Recovered/Not Resolved]
